FAERS Safety Report 7700835-3 (Version None)
Quarter: 2011Q3

REPORT INFORMATION
  Report Type: 
  Country: None (occurrence: None)
  Receive Date: 20110822
  Receipt Date: 20110811
  Transmission Date: 20111222
  Serious: Yes (Life-Threatening, Hospitalization, Disabling, Other)
  Sender: FDA-Public Use
  Company Number: US-CELGENEUS-087-50794-11070229

PATIENT
  Sex: Female

DRUGS (1)
  1. VIDAZA [Suspect]
     Dosage: 100 MILLIGRAM
     Route: 041
     Dates: start: 20110621, end: 20110624

REACTIONS (4)
  - PNEUMONIA [None]
  - SEPSIS [None]
  - FEBRILE NEUTROPENIA [None]
  - INJECTION SITE VESICLES [None]
